FAERS Safety Report 9557319 (Version 1)
Quarter: 2013Q3

REPORT INFORMATION
  Report Type: Spontaneous
  Country: PT (occurrence: PT)
  Receive Date: 20130926
  Receipt Date: 20130926
  Transmission Date: 20140515
  Serious: Yes (Life-Threatening, Other)
  Sender: FDA-Public Use
  Company Number: PT-BAXTER-2013BAX036666

PATIENT
  Sex: Male

DRUGS (2)
  1. KIOVIG 100 MG/ML - FRASCO PARA INJECT?VEIS - 1 UNIDADE(S) - 100 ML [Suspect]
     Indication: MUSCULAR WEAKNESS
     Dosage: 0.4G PER KG OF BODY WEIGHT
     Route: 042
     Dates: start: 201211
  2. CEFTRIAXONE [Suspect]
     Indication: MUSCULAR WEAKNESS
     Route: 065
     Dates: start: 201211

REACTIONS (3)
  - Asthenia [Recovering/Resolving]
  - Sensory loss [Recovering/Resolving]
  - Guillain-Barre syndrome [Recovering/Resolving]
